FAERS Safety Report 6716581-9 (Version None)
Quarter: 2010Q2

REPORT INFORMATION
  Report Type: 
  Country: None (occurrence: None)
  Receive Date: 20100507
  Receipt Date: 20100428
  Transmission Date: 20101027
  Serious: Yes (Hospitalization, Other)
  Sender: FDA-Public Use
  Company Number: US-ABBOTT-10P-163-0628857-00

PATIENT
  Sex: Male
  Weight: 74.91 kg

DRUGS (13)
  1. HUMIRA [Suspect]
     Indication: CROHN'S DISEASE
     Dosage: TOOK TOTAL OF THREE INJECTIONS
  2. HUMIRA [Suspect]
     Dates: start: 20090901
  3. HUMIRA [Suspect]
     Dates: start: 20090101, end: 20090101
  4. HUMIRA [Suspect]
     Dates: start: 20090101
  5. HUMIRA [Suspect]
     Dates: start: 20100101
  6. PREDNISONE [Concomitant]
     Indication: DRUG USE FOR UNKNOWN INDICATION
  7. TPN ELECTROLYTES IN PLASTIC CONTAINER [Concomitant]
     Indication: MEDICAL DIET
     Dosage: INFUSION NIGHTLY VIA THE POWER PORT
  8. PREVACID [Concomitant]
     Indication: DRUG USE FOR UNKNOWN INDICATION
  9. OXYCODONE HCL [Concomitant]
     Indication: PAIN
  10. OXYCODONE HCL [Concomitant]
     Indication: CROHN'S DISEASE
  11. ACTONEL [Concomitant]
     Indication: DRUG USE FOR UNKNOWN INDICATION
  12. REMERON [Concomitant]
     Indication: DEPRESSION
  13. KLONOPIN [Concomitant]
     Indication: DRUG USE FOR UNKNOWN INDICATION

REACTIONS (4)
  - DRUG INEFFECTIVE [None]
  - HAEMATOCRIT DECREASED [None]
  - PYREXIA [None]
  - STREPTOCOCCAL SEPSIS [None]
